FAERS Safety Report 13648410 (Version 1)
Quarter: 2017Q2

REPORT INFORMATION
  Report Type: Spontaneous
  Country: FR (occurrence: FR)
  Receive Date: 20170613
  Receipt Date: 20170613
  Transmission Date: 20170830
  Serious: Yes (Other)
  Sender: FDA-Public Use
  Company Number: FR-BAYER-2017-110279

PATIENT
  Age: 34 Year
  Sex: Female

DRUGS (1)
  1. MIRENA [Suspect]
     Active Substance: LEVONORGESTREL
     Indication: CONTRACEPTION
     Dosage: 20 MG, CONT
     Route: 015
     Dates: start: 20130701, end: 20170201

REACTIONS (10)
  - Depression [Recovered/Resolved]
  - Anxiety [Recovered/Resolved]
  - Aggression [Recovered/Resolved]
  - Vulvovaginal pain [Recovered/Resolved]
  - Fungal infection [Recovered/Resolved]
  - Adnexa uteri pain [Recovered/Resolved]
  - Vulvovaginal dryness [Recovered/Resolved]
  - Libido decreased [Recovered/Resolved]
  - Mood altered [Recovered/Resolved]
  - Breast pain [Recovered/Resolved]

NARRATIVE: CASE EVENT DATE: 20130801
